FAERS Safety Report 12500835 (Version 2)
Quarter: 2016Q3

REPORT INFORMATION
  Report Type: Spontaneous
  Country: TW (occurrence: TW)
  Receive Date: 20160627
  Receipt Date: 20160715
  Transmission Date: 20161109
  Serious: Yes (Other)
  Sender: FDA-Public Use
  Company Number: TW-PFIZER INC-2016317185

PATIENT
  Age: 50 Year
  Sex: Female

DRUGS (3)
  1. CISPLATIN. [Suspect]
     Active Substance: CISPLATIN
     Indication: NASOPHARYNGEAL CANCER RECURRENT
     Dosage: 80 MG/M2, SINGLE 6-HR INFUSION,ON DAY 1
  2. FLUOROURACIL. [Suspect]
     Active Substance: FLUOROURACIL
     Indication: NASOPHARYNGEAL CANCER RECURRENT
     Dosage: 800 MG/M2, CONTINUOUS PUMP,FROM DAY 1 TO DAY 4
  3. DOCETAXEL. [Suspect]
     Active Substance: DOCETAXEL
     Indication: NASOPHARYNGEAL CANCER RECURRENT
     Dosage: 60 MG/M2, SINGLE 1-HR INFUSION,ON DAY 1

REACTIONS (3)
  - Febrile neutropenia [Recovering/Resolving]
  - Osmotic demyelination syndrome [Recovering/Resolving]
  - Hyponatraemia [Recovering/Resolving]

NARRATIVE: CASE EVENT DATE: 20140605
